FAERS Safety Report 4399030-8 (Version None)
Quarter: 2004Q3

REPORT INFORMATION
  Report Type: 
  Country: None (occurrence: None)
  Receive Date: 20040712
  Receipt Date: 20040618
  Transmission Date: 20050211
  Serious: Yes (Other)
  Sender: FDA-Public Use
  Company Number: US_0406103592

PATIENT
  Age: 59 Year
  Sex: Female

DRUGS (3)
  1. EVISTA [Suspect]
     Dates: start: 20000101
  2. FOSAMAX [Concomitant]
  3. CALCIUM WITH VITAMIN D [Concomitant]

REACTIONS (3)
  - ANKLE FRACTURE [None]
  - FALL [None]
  - LABORATORY TEST ABNORMAL [None]
